FAERS Safety Report 8337578-1 (Version None)
Quarter: 2012Q2

REPORT INFORMATION
  Report Type: 
  Country: None (occurrence: None)
  Receive Date: 20120504
  Receipt Date: 20110912
  Transmission Date: 20120825
  Serious: No
  Sender: FDA-Public Use
  Company Number: US-TEVA-2011004714

PATIENT
  Sex: Female
  Weight: 64.468 kg

DRUGS (4)
  1. KLONOPIN [Concomitant]
  2. NUVIGIL [Suspect]
     Indication: SOMNOLENCE
     Dosage: 150 MILLIGRAM;
     Route: 048
     Dates: start: 20110901, end: 20110902
  3. ALBUTEROL [Concomitant]
     Dates: start: 19980101
  4. BIAXIN [Concomitant]
     Dates: start: 20110909

REACTIONS (13)
  - COUGH [None]
  - MUSCLE TIGHTNESS [None]
  - CHEST PAIN [None]
  - HEADACHE [None]
  - PYREXIA [None]
  - ANAEMIA [None]
  - DYSPHAGIA [None]
  - MYALGIA [None]
  - RASH [None]
  - NECK PAIN [None]
  - OROPHARYNGEAL PAIN [None]
  - FACIAL PAIN [None]
  - CHILLS [None]
